FAERS Safety Report 21305677 (Version 1)
Quarter: 2022Q3

REPORT INFORMATION
  Report Type: Spontaneous
  Country: CN (occurrence: CN)
  Receive Date: 20220908
  Receipt Date: 20220908
  Transmission Date: 20221026
  Serious: Yes (Other)
  Sender: FDA-Public Use
  Company Number: None

PATIENT
  Age: 40 Year
  Sex: Female
  Weight: 40 kg

DRUGS (6)
  1. CYCLOPHOSPHAMIDE [Suspect]
     Active Substance: CYCLOPHOSPHAMIDE
     Indication: Extra-osseous Ewing^s sarcoma
     Dosage: 1500 MG, ONCE DAILY, DILUTED WITH DILUENT 0.9% SODIUM CHLORIDE INJECTION (500 ML)
     Route: 041
     Dates: start: 20220806, end: 20220806
  2. SODIUM CHLORIDE [Suspect]
     Active Substance: SODIUM CHLORIDE
     Indication: Medication dilution
     Dosage: 500 ML,ONCE A DAY, DILUTED WITH CYCLOPHOSPHAMIDE (1500 MG)
     Route: 041
     Dates: start: 20220806, end: 20220806
  3. SODIUM CHLORIDE [Suspect]
     Active Substance: SODIUM CHLORIDE
     Dosage: 100 ML, ONCE IN 7 DAY, DILUTED WITH VINCRISTINE SULFATE (1.9 MG)
     Route: 041
     Dates: start: 20220806, end: 20220813
  4. DEXTROSE MONOHYDRATE [Suspect]
     Active Substance: DEXTROSE MONOHYDRATE
     Indication: Medication dilution
     Dosage: 500 ML, ONCE DAILY, DILUTED WITH PIRARUBICIN HYDROCHLORIDE (40 MG)
     Route: 041
     Dates: start: 20220807, end: 20220807
  5. PIRARUBICIN HYDROCHLORIDE [Suspect]
     Active Substance: PIRARUBICIN HYDROCHLORIDE
     Indication: Extra-osseous Ewing^s sarcoma
     Dosage: 40 MG, ONCE DAILY, DILUTED WITH DILUENT GLUCOSE INJECTION (500 ML)
     Route: 041
     Dates: start: 20220806, end: 20220806
  6. VINCRISTINE SULFATE [Suspect]
     Active Substance: VINCRISTINE SULFATE
     Indication: Extra-osseous Ewing^s sarcoma
     Dosage: 1.9 MG, ONCE IN 7 DAY, DILUTED WITH DILUENT 0.9% SODIUM CHLORIDE (100 ML)
     Route: 041
     Dates: start: 20220806, end: 20220813

REACTIONS (1)
  - Myelosuppression [Recovering/Resolving]

NARRATIVE: CASE EVENT DATE: 20220819
